FAERS Safety Report 4900619-5 (Version None)
Quarter: 2006Q1

REPORT INFORMATION
  Report Type: 
  Country: None (occurrence: None)
  Receive Date: 20060201
  Receipt Date: 20060116
  Transmission Date: 20060701
  Serious: Yes (Other)
  Sender: FDA-Public Use
  Company Number: USA0510111816

PATIENT
  Age: 84 Year
  Sex: Female
  Weight: 93.4 kg

DRUGS (8)
  1. CYMBALTA [Suspect]
     Indication: NEUROPATHY
     Dosage: 60 MG, ORAL
     Route: 048
     Dates: start: 20050101, end: 20051019
  2. TRENTAL [Concomitant]
  3. LIPITOR [Concomitant]
  4. NEURONTIN [Concomitant]
  5. ALTACE [Concomitant]
  6. GLUCOTROL XL [Concomitant]
  7. CITRUCEL (METHYLCELLULOSE) [Concomitant]
  8. ASPIRIN [Concomitant]

REACTIONS (6)
  - ACTIVITIES OF DAILY LIVING IMPAIRED [None]
  - ATHETOSIS [None]
  - DYSKINESIA [None]
  - ENDOMETRIAL CANCER [None]
  - PLATELET COUNT DECREASED [None]
  - TREMOR [None]
